FAERS Safety Report 5441058-0 (Version None)
Quarter: 2007Q3

REPORT INFORMATION
  Report Type: 
  Country: None (occurrence: None)
  Receive Date: 20070831
  Receipt Date: 20070820
  Transmission Date: 20080115
  Serious: Yes (Hospitalization, Other)
  Sender: FDA-Public Use
  Company Number: US-PFIZER INC-2007043326

PATIENT
  Sex: Male
  Weight: 130.6 kg

DRUGS (1)
  1. CELEBREX [Suspect]

REACTIONS (5)
  - BIPOLAR I DISORDER [None]
  - CARDIOVASCULAR DISORDER [None]
  - HAEMORRHAGE [None]
  - SCHIZOPHRENIA [None]
  - ULCER [None]
